FAERS Safety Report 10286030 (Version 1)
Quarter: 2014Q3

REPORT INFORMATION
  Report Type: Spontaneous
  Country: US (occurrence: None)
  Receive Date: 20140703
  Receipt Date: 20140703
  Transmission Date: 20150326
  Serious: Yes (Life-Threatening, Disabling)
  Sender: FDA-Public Use
  Company Number: None

PATIENT
  Age: 57 Year
  Sex: Female
  Weight: 49.9 kg

DRUGS (1)
  1. FORTEO [Suspect]
     Active Substance: TERIPARATIDE
     Indication: OSTEOPOROSIS
     Dosage: 20 MCG. PER INJECTION  ONCE DAILY  GIVEN INTO/UNDER THE SKIN
     Dates: start: 20130708, end: 20130929

REACTIONS (23)
  - Chest discomfort [None]
  - Injection site pain [None]
  - Nausea [None]
  - Dyspnoea [None]
  - Amyotrophic lateral sclerosis [None]
  - Constipation [None]
  - Choking [None]
  - Plantar fascial fibromatosis [None]
  - Anosmia [None]
  - Urine abnormality [None]
  - Fatigue [None]
  - Hypercalcaemia [None]
  - Ageusia [None]
  - Thirst [None]
  - Injection site haemorrhage [None]
  - Vitreous adhesions [None]
  - Blister [None]
  - Inflammation [None]
  - Arthralgia [None]
  - Diarrhoea [None]
  - Hyperreflexia [None]
  - Injection site reaction [None]
  - Injection site bruising [None]

NARRATIVE: CASE EVENT DATE: 20140423
